FAERS Safety Report 7050489-7 (Version None)
Quarter: 2010Q4

REPORT INFORMATION
  Report Type: 
  Country: None (occurrence: None)
  Receive Date: 20101018
  Receipt Date: 20101005
  Transmission Date: 20110411
  Serious: Yes (Other)
  Sender: FDA-Public Use
  Company Number: BR-ELI_LILLY_AND_COMPANY-BR201010001287

PATIENT
  Sex: Female
  Weight: 76 kg

DRUGS (3)
  1. CYMBALTA [Suspect]
     Indication: BONE PAIN
     Dosage: 30 MG, DAILY (1/D)
     Route: 065
  2. TEGRETOL [Concomitant]
     Dosage: UNK, UNKNOWN
     Route: 065
  3. ARADOIS [Concomitant]
     Dosage: UNK, UNKNOWN
     Route: 065

REACTIONS (3)
  - BLOOD URINE PRESENT [None]
  - DYSURIA [None]
  - OFF LABEL USE [None]
